FAERS Safety Report 16803116 (Version 5)
Quarter: 2019Q4

REPORT INFORMATION
  Report Type: Report from Study
  Country: None (occurrence: TR)
  Receive Date: 20190913
  Receipt Date: 20191223
  Transmission Date: 20200122
  Serious: Yes (Hospitalization)
  Sender: FDA-Public Use
  Company Number: TR-ABBVIE-19K-161-2922178-00

PATIENT
  Age: 62 Year
  Sex: Male
  Weight: 53 kg

DRUGS (1)
  1. DUODOPA [Suspect]
     Active Substance: CARBIDOPA\LEVODOPA
     Indication: PARKINSON^S DISEASE
     Dosage: MORNING DOSE (ML): 7.50 CONTINUOUS DOSE (ML): 5.30 EXTRA DOSE(ML): 1.00
     Route: 050
     Dates: start: 20161102, end: 20191213

REACTIONS (7)
  - Aspiration [Recovered/Resolved]
  - Tracheo-oesophageal fistula [Recovered/Resolved]
  - Pneumonia [Not Recovered/Not Resolved]
  - Incorrect route of product administration [Recovered/Resolved]
  - Aspiration [Not Recovered/Not Resolved]
  - Device dislocation [Recovered/Resolved]
  - Device dislocation [Not Recovered/Not Resolved]

NARRATIVE: CASE EVENT DATE: 20190901
